FAERS Safety Report 5096115-8 (Version None)
Quarter: 2006Q3

REPORT INFORMATION
  Report Type: 
  Country: None (occurrence: None)
  Receive Date: 20060731
  Receipt Date: 20060427
  Transmission Date: 20061208
  Serious: No
  Sender: FDA-Public Use
  Company Number: 2006PV012903

PATIENT
  Age: 67 Year
  Sex: Female
  Weight: 83.9154 kg

DRUGS (5)
  1. BYETTA [Suspect]
     Indication: DIABETES MELLITUS NON-INSULIN-DEPENDENT
     Dosage: 5 MCG; BID; SC
     Route: 058
     Dates: start: 20060301
  2. GLUCOPHGE ^BRISTOL-MYERS SQUIBB^ [Concomitant]
  3. ACTOS [Concomitant]
  4. UROSODIOL [Concomitant]
  5. ARIMEDEX [Concomitant]

REACTIONS (3)
  - ANOREXIA [None]
  - FEELING COLD [None]
  - WEIGHT INCREASED [None]
